FAERS Safety Report 4340641-3 (Version None)
Quarter: 2004Q2

REPORT INFORMATION
  Report Type: 
  Country: None (occurrence: None)
  Receive Date: 20040413
  Receipt Date: 20040329
  Transmission Date: 20050107
  Serious: Yes (Hospitalization)
  Sender: FDA-Public Use
  Company Number: 195059

PATIENT
  Age: 70 Year
  Sex: Male

DRUGS (1)
  1. AVONEX [Suspect]
     Indication: MULTIPLE SCLEROSIS
     Dates: start: 19971101

REACTIONS (6)
  - CARCINOMA [None]
  - CEREBROVASCULAR ACCIDENT [None]
  - EAR INFECTION [None]
  - LIP AND/OR ORAL CAVITY CANCER [None]
  - MYOCARDIAL INFARCTION [None]
  - SINUS DISORDER [None]
